FAERS Safety Report 23647292 (Version 1)
Quarter: 2024Q1

REPORT INFORMATION
  Report Type: Spontaneous
  Country: US (occurrence: None)
  Receive Date: 20240318
  Receipt Date: 20240318
  Transmission Date: 20240410
  Serious: Yes (Other)
  Sender: FDA-Public Use
  Company Number: None

PATIENT
  Age: 39 Year
  Sex: Male
  Weight: 95.9 kg

DRUGS (5)
  1. ALTUVIIIO [Suspect]
     Active Substance: EFANESOCTOCOG ALFA
     Indication: Factor VIII deficiency
     Dosage: OTHER FREQUENCY : ONCE;?
     Route: 042
     Dates: start: 20240314
  2. ALTUVIIIO [Suspect]
     Active Substance: EFANESOCTOCOG ALFA
     Indication: Factor VIII deficiency
     Dosage: OTHER FREQUENCY : ONCE;?
     Route: 042
     Dates: start: 20240314
  3. Hemlibra [Concomitant]
  4. CARVEDILOL [Concomitant]
  5. VITAMIN D2 [Concomitant]

REACTIONS (4)
  - Flushing [None]
  - Head discomfort [None]
  - Feeling hot [None]
  - Feeling abnormal [None]

NARRATIVE: CASE EVENT DATE: 20240314
